FAERS Safety Report 4713415-9 (Version None)
Quarter: 2005Q3

REPORT INFORMATION
  Report Type: 
  Country: None (occurrence: None)
  Receive Date: 20050711
  Receipt Date: 20050623
  Transmission Date: 20060218
  Serious: Yes (Other)
  Sender: FDA-Public Use
  Company Number: 214228

PATIENT

DRUGS (1)
  1. MABTHERA                            (RITUXIMAB) [Suspect]
     Dosage: INTRAVENOUS
     Route: 042

REACTIONS (1)
  - AUTOIMMUNE THROMBOCYTOPENIA [None]
